FAERS Safety Report 6473913-7 (Version None)
Quarter: 2009Q4

REPORT INFORMATION
  Report Type: 
  Country: None (occurrence: None)
  Receive Date: 20091204
  Receipt Date: 20090908
  Transmission Date: 20100525
  Serious: No
  Sender: FDA-Public Use
  Company Number: A0806587A

PATIENT
  Sex: Male

DRUGS (2)
  1. LAMICTAL [Suspect]
     Indication: DRUG USE FOR UNKNOWN INDICATION
     Dosage: 100MG UNKNOWN
  2. LAMICTAL [Suspect]
     Dosage: 25MG UNKNOWN

REACTIONS (2)
  - ADVERSE EVENT [None]
  - DRUG INTOLERANCE [None]
